FAERS Safety Report 18441299 (Version 3)
Quarter: 2020Q4

REPORT INFORMATION
  Report Type: Report from Study
  Country: US (occurrence: US)
  Receive Date: 20201029
  Receipt Date: 20201118
  Transmission Date: 20210114
  Serious: Yes (Death, Life-Threatening, Hospitalization, Other)
  Sender: FDA-Public Use
  Company Number: US-PFIZER INC-2020412549

PATIENT
  Age: 45 Year
  Sex: Female

DRUGS (1)
  1. GEMCITABINE HYDROCHLORIDE. [Suspect]
     Active Substance: GEMCITABINE HYDROCHLORIDE
     Indication: CERVIX CARCINOMA RECURRENT
     Dosage: UNK

REACTIONS (5)
  - Thrombotic microangiopathy [Fatal]
  - Haematuria [Fatal]
  - Proteinuria [Fatal]
  - Acute kidney injury [Fatal]
  - Renal tubular necrosis [Fatal]
